FAERS Safety Report 17795714 (Version 1)
Quarter: 2020Q2

REPORT INFORMATION
  Report Type: Spontaneous
  Country: BR (occurrence: BR)
  Receive Date: 20200516
  Receipt Date: 20200516
  Transmission Date: 20200714
  Serious: Yes (Other)
  Sender: FDA-Public Use
  Company Number: BR-LUPIN PHARMACEUTICALS INC.-2020-02182

PATIENT
  Age: 35 Year
  Sex: Female

DRUGS (3)
  1. BETAMETHASONE. [Suspect]
     Active Substance: BETAMETHASONE
     Indication: FOETAL HEART RATE DISORDER
     Dosage: 8 MILLIGRAM, QD
     Route: 065
  2. TERBULINE [Suspect]
     Active Substance: TERBUTALINE SULFATE
     Indication: FOETAL HEART RATE DISORDER
     Dosage: 400 MILLIGRAM, QD
     Route: 065
  3. DEXAMETHASONE. [Suspect]
     Active Substance: DEXAMETHASONE
     Indication: FOETAL HEART RATE DISORDER
     Dosage: 8 MILLIGRAM, QD
     Route: 065

REACTIONS (3)
  - Gestational diabetes [Recovering/Resolving]
  - Exposure during pregnancy [Unknown]
  - Adverse drug reaction [Unknown]
